FAERS Safety Report 26216764 (Version 1)
Quarter: 2025Q4

REPORT INFORMATION
  Report Type: Spontaneous
  Country: EU (occurrence: EU)
  Receive Date: 20251231
  Receipt Date: 20251231
  Transmission Date: 20260117
  Serious: Yes (Hospitalization, Other)
  Sender: AUROBINDO
  Company Number: EU-AFSSAPS-NT2025001252

PATIENT
  Age: 68 Year
  Sex: Female

DRUGS (7)
  1. OLANZAPINE [Suspect]
     Active Substance: OLANZAPINE
     Indication: Delirium
     Dosage: 10 MG/DAY, THEN 20 MG/DAY FROM 05/05
     Route: 061
     Dates: start: 20250401, end: 20250422
  2. OLANZAPINE [Suspect]
     Active Substance: OLANZAPINE
     Dosage: 10 MG/DAY, THEN 20 MG/DAY FROM 05/05
     Route: 061
     Dates: start: 20250429, end: 20250526
  3. CYAMEMAZINE [Suspect]
     Active Substance: CYAMEMAZINE
     Indication: Delirium
     Dosage: NR
     Route: 061
     Dates: start: 20250401, end: 20250422
  4. CYAMEMAZINE [Suspect]
     Active Substance: CYAMEMAZINE
     Dosage: NR
     Route: 061
  5. VALIUM [Suspect]
     Active Substance: DIAZEPAM
     Indication: Delirium
     Dosage: NR
     Route: 061
     Dates: start: 20250401, end: 20250422
  6. VALIUM [Suspect]
     Active Substance: DIAZEPAM
     Dosage: NR
     Route: 061
  7. TERALITHE [Suspect]
     Active Substance: LITHIUM CARBONATE
     Indication: Delirium
     Dosage: 200 MILLIGRAM, ONCE A DAY
     Route: 061
     Dates: start: 20250519

REACTIONS (3)
  - Bicytopenia [Unknown]
  - Neutropenia [Unknown]
  - Anaemia [Unknown]

NARRATIVE: CASE EVENT DATE: 20250522
